FAERS Safety Report 9339938 (Version 1)
Quarter: 2013Q2

REPORT INFORMATION
  Report Type: Spontaneous
  Country: US (occurrence: None)
  Receive Date: 20130607
  Receipt Date: 20130607
  Transmission Date: 20140414
  Serious: Yes (Hospitalization)
  Sender: FDA-Public Use
  Company Number: None

PATIENT
  Age: 75 Year
  Sex: Male
  Weight: 87.9 kg

DRUGS (9)
  1. XARELTO [Suspect]
     Indication: ATRIAL FIBRILLATION
     Dosage: XARELTO 20MG DAILY ORALLY
     Route: 048
     Dates: start: 20130515
  2. ASPIRIN 81MG [Suspect]
     Indication: CARDIOMYOPATHY
     Route: 048
     Dates: start: 20130515
  3. TAMSULOSIN [Concomitant]
  4. GABAPENTIN [Concomitant]
  5. METOPROLOL TARTRATE [Concomitant]
  6. PANTOPRAZOLE [Concomitant]
  7. FINASTERIDE [Concomitant]
  8. FOLIC ACID [Concomitant]
  9. MAGNESIUM OXIDE [Concomitant]

REACTIONS (1)
  - Haematuria [None]
